FAERS Safety Report 16184803 (Version 1)
Quarter: 2019Q2

REPORT INFORMATION
  Report Type: Spontaneous
  Country: ES (occurrence: ES)
  Receive Date: 20190411
  Receipt Date: 20190411
  Transmission Date: 20190711
  Serious: Yes (Hospitalization)
  Sender: FDA-Public Use
  Company Number: ES-MYLANLABS-2019M1033048

PATIENT
  Age: 57 Year
  Sex: Male

DRUGS (3)
  1. VIVACE                             /06864501/ [Suspect]
     Active Substance: DELAPRIL HYDROCHLORIDE\MANIDIPINE HYDROCHLORIDE
     Indication: HYPERTENSION
     Dosage: UNK (30 PLUS 10 MG), 1 OT 2 TABLETS QD
     Route: 048
     Dates: end: 2018
  2. AMLODIPINE [Suspect]
     Active Substance: AMLODIPINE BESYLATE
     Indication: HYPERTENSION
     Dosage: UNK
     Dates: start: 2018
  3. ENALAPRIL [Suspect]
     Active Substance: ENALAPRIL
     Indication: HYPERTENSION
     Dosage: UNK
     Dates: start: 2018

REACTIONS (4)
  - Ageusia [Unknown]
  - Anosmia [Unknown]
  - Pneumonia [Unknown]
  - Back pain [Unknown]

NARRATIVE: CASE EVENT DATE: 2018
